FAERS Safety Report 9127116 (Version 1)
Quarter: 2013Q1

REPORT INFORMATION
  Report Type: Spontaneous
  Country: US (occurrence: US)
  Receive Date: 20130122
  Receipt Date: 20130122
  Transmission Date: 20140127
  Serious: No
  Sender: FDA-Public Use
  Company Number: US-MYLANLABS-2012S1020553

PATIENT
  Age: 73 Year
  Sex: Female
  Weight: 80.74 kg

DRUGS (10)
  1. LETROZOLE [Suspect]
     Indication: BREAST CANCER
     Route: 048
     Dates: start: 201110
  2. LETROZOLE [Suspect]
     Indication: BREAST CANCER
     Route: 048
  3. BENICAR [Concomitant]
     Indication: BLOOD PRESSURE INCREASED
     Route: 048
  4. ZETIA [Concomitant]
     Indication: BLOOD CHOLESTEROL INCREASED
     Route: 048
  5. SYNTHROID [Concomitant]
     Indication: HYPOTHYROIDISM
     Route: 048
  6. OMEGA 3 [Concomitant]
     Indication: DRY EYE
     Route: 048
  7. VITAMIN D3 [Concomitant]
     Indication: VITAMIN SUPPLEMENTATION
     Route: 048
  8. XALATAN [Concomitant]
     Indication: GLAUCOMA
  9. VITAMIN B [Concomitant]
     Indication: GLAUCOMA
  10. PRILOSEC [Concomitant]

REACTIONS (13)
  - Memory impairment [Not Recovered/Not Resolved]
  - Rash [Not Recovered/Not Resolved]
  - Cough [Not Recovered/Not Resolved]
  - Flushing [Not Recovered/Not Resolved]
  - Pain in extremity [Not Recovered/Not Resolved]
  - Muscular weakness [Not Recovered/Not Resolved]
  - Mobility decreased [Not Recovered/Not Resolved]
  - Alopecia [Not Recovered/Not Resolved]
  - Hair texture abnormal [Not Recovered/Not Resolved]
  - Dry skin [Not Recovered/Not Resolved]
  - Corneal disorder [Not Recovered/Not Resolved]
  - Pharyngeal hypoaesthesia [Not Recovered/Not Resolved]
  - Delayed sleep phase [Not Recovered/Not Resolved]
